FAERS Safety Report 6553257-5 (Version None)
Quarter: 2010Q1

REPORT INFORMATION
  Report Type: 
  Country: None (occurrence: None)
  Receive Date: 20100127
  Receipt Date: 20090424
  Transmission Date: 20100710
  Serious: No
  Sender: FDA-Public Use
  Company Number: A0782167A

PATIENT
  Sex: Female

DRUGS (3)
  1. SUMATRIPTAN SUCCINATE [Suspect]
     Indication: MIGRAINE
  2. SUMATRIPTAN SUCCINATE [Suspect]
     Route: 048
  3. SUMATRIPTAN SUCCINATE [Suspect]

REACTIONS (2)
  - DRUG EFFECT DELAYED [None]
  - DRUG INEFFECTIVE [None]
